FAERS Safety Report 7312462-0 (Version None)
Quarter: 2011Q1

REPORT INFORMATION
  Report Type: 
  Country: None (occurrence: None)
  Receive Date: 20110224
  Receipt Date: 20100716
  Transmission Date: 20110831
  Serious: No
  Sender: FDA-Public Use
  Company Number: US-MYLANLABS-2010S1005956

PATIENT
  Age: 8 Year
  Sex: Male

DRUGS (2)
  1. GUANFACINE HYDROCHLORIDE [Suspect]
     Indication: AGGRESSION
     Dates: start: 20100322, end: 20100404
  2. GUANFACINE HYDROCHLORIDE [Suspect]
     Indication: ANXIETY
     Dates: start: 20100322, end: 20100404

REACTIONS (4)
  - IRRITABILITY [None]
  - AGITATION [None]
  - CHANGE OF BOWEL HABIT [None]
  - ANXIETY [None]
